FAERS Safety Report 7203815-X (Version None)
Quarter: 2010Q4

REPORT INFORMATION
  Report Type: 
  Country: None (occurrence: None)
  Receive Date: 20101230
  Receipt Date: 20101217
  Transmission Date: 20110411
  Serious: Yes (Hospitalization)
  Sender: FDA-Public Use
  Company Number: US-ELI_LILLY_AND_COMPANY-US201012005584

PATIENT
  Sex: Male

DRUGS (1)
  1. EFFIENT [Suspect]
     Dates: start: 20101110

REACTIONS (3)
  - HOSPITALISATION [None]
  - MUSCULOSKELETAL PAIN [None]
  - PAIN IN EXTREMITY [None]
